FAERS Safety Report 7717903-2 (Version None)
Quarter: 2011Q3

REPORT INFORMATION
  Report Type: 
  Country: None (occurrence: None)
  Receive Date: 20110830
  Receipt Date: 20110818
  Transmission Date: 20111222
  Serious: Yes (Death, Other)
  Sender: FDA-Public Use
  Company Number: JP-TEVA-298203ISR

PATIENT
  Age: 73 Year

DRUGS (6)
  1. VINCRISTINE [Suspect]
     Indication: TRANSITIONAL CELL CARCINOMA
     Dosage: .6 MG/M2;
  2. METHOTREXATE [Suspect]
     Indication: TRANSITIONAL CELL CARCINOMA
     Dosage: 20 MG/M2;
  3. CYCLOPHOSPHAMIDE [Suspect]
     Indication: TRANSITIONAL CELL CARCINOMA
     Dosage: 500 MG/M2;
  4. ADRIAMYCIN PFS [Suspect]
     Indication: TRANSITIONAL CELL CARCINOMA
     Dosage: 20 MG/M2;
  5. CISPLATIN [Suspect]
     Indication: TRANSITIONAL CELL CARCINOMA
     Dosage: 50 MG/M2;
  6. BLEOMYCIN [Suspect]
     Indication: TRANSITIONAL CELL CARCINOMA
     Dosage: 30 MILLIGRAM;

REACTIONS (1)
  - PULMONARY FIBROSIS [None]
